FAERS Safety Report 13664002 (Version 1)
Quarter: 2017Q2

REPORT INFORMATION
  Report Type: Spontaneous
  Country: US (occurrence: US)
  Receive Date: 20170618
  Receipt Date: 20170618
  Transmission Date: 20170830
  Serious: Yes (Life-Threatening, Disabling, Other)
  Sender: FDA-Public Use
  Company Number: None

PATIENT
  Age: 38 Year
  Sex: Male
  Weight: 90 kg

DRUGS (4)
  1. XANAX [Concomitant]
     Active Substance: ALPRAZOLAM
  2. PROZAC [Concomitant]
     Active Substance: FLUOXETINE HYDROCHLORIDE
  3. SYNTHROID [Concomitant]
     Active Substance: LEVOTHYROXINE SODIUM
  4. ALPRAZOLAM. [Suspect]
     Active Substance: ALPRAZOLAM
     Indication: PANIC DISORDER
     Dosage: EVERY 6 HOURS

REACTIONS (14)
  - Suicidal ideation [None]
  - Hypoaesthesia [None]
  - Nervous system disorder [None]
  - Akathisia [None]
  - Drug tolerance increased [None]
  - Withdrawal syndrome [None]
  - Psychotic disorder [None]
  - Aggression [None]
  - Emotional distress [None]
  - Drug half-life reduced [None]
  - Violence-related symptom [None]
  - Anger [None]
  - Neuralgia [None]
  - Cognitive disorder [None]

NARRATIVE: CASE EVENT DATE: 20150813
